FAERS Safety Report 4875640-6 (Version None)
Quarter: 2006Q1

REPORT INFORMATION
  Report Type: 
  Country: None (occurrence: None)
  Receive Date: 20060105
  Receipt Date: 20051226
  Transmission Date: 20060701
  Serious: Yes (Death)
  Sender: FDA-Public Use
  Company Number: 2005166993

PATIENT
  Age: 64 Year
  Sex: Female
  Weight: 58 kg

DRUGS (7)
  1. ZYVOX [Suspect]
     Indication: ENTEROCOCCAL INFECTION
     Dosage: 1200 MG (600 MG, 2 IN 1 D), INTRAVENOUS
     Route: 042
     Dates: start: 20041128, end: 20041210
  2. ZYVOX [Suspect]
     Indication: PATHOGEN RESISTANCE
     Dosage: 1200 MG (600 MG, 2 IN 1 D), INTRAVENOUS
     Route: 042
     Dates: start: 20041128, end: 20041210
  3. LEVOFLOXACIN [Concomitant]
  4. MEROPENEM (MEROPENEM) [Concomitant]
  5. FLUCONAZOLE [Concomitant]
  6. CYCLOSERINE [Concomitant]
  7. ALL OTHER THERAPEUTIC PRODUCTS (ALL OTHER THERAPEUTIC PRODUCTS) [Concomitant]

REACTIONS (3)
  - CONDITION AGGRAVATED [None]
  - MULTI-ORGAN FAILURE [None]
  - SEPSIS [None]
